FAERS Safety Report 21999760 (Version 1)
Quarter: 2023Q1

REPORT INFORMATION
  Report Type: Spontaneous
  Country: US (occurrence: None)
  Receive Date: 20230215
  Receipt Date: 20230215
  Transmission Date: 20230418
  Serious: Yes (Life-Threatening, Hospitalization)
  Sender: FDA-Public Use
  Company Number: None

PATIENT
  Age: 73 Year
  Sex: Male
  Weight: 78.2 kg

DRUGS (4)
  1. GAMMAGARD S/D [Suspect]
     Active Substance: HUMAN IMMUNOGLOBULIN G
     Indication: Prophylaxis against transplant rejection
     Dosage: OTHER FREQUENCY : ONCE;?
     Route: 041
     Dates: start: 20230207, end: 20230207
  2. GAMMAGARD S/D [Suspect]
     Active Substance: HUMAN IMMUNOGLOBULIN G
     Indication: Prophylaxis against transplant rejection
     Dosage: OTHER FREQUENCY : ONCE;?
     Route: 041
     Dates: start: 20230207, end: 20230207
  3. ACETAMINOPHEN [Concomitant]
     Active Substance: ACETAMINOPHEN
     Dates: start: 20230207, end: 20230207
  4. Diphenhydramine 25 mg [Concomitant]
     Dates: start: 20230207, end: 20230207

REACTIONS (6)
  - Chills [None]
  - Pulse absent [None]
  - Acute respiratory distress syndrome [None]
  - Transfusion-related acute lung injury [None]
  - Pulmonary oedema [None]
  - Hypertension [None]

NARRATIVE: CASE EVENT DATE: 20230207
